FAERS Safety Report 7503522-X (Version None)
Quarter: 2011Q2

REPORT INFORMATION
  Report Type: 
  Country: None (occurrence: None)
  Receive Date: 20110525
  Receipt Date: 20110516
  Transmission Date: 20111010
  Serious: Yes (Hospitalization)
  Sender: FDA-Public Use
  Company Number: FR-ROCHE-778025

PATIENT
  Age: 63 Year
  Sex: Male

DRUGS (11)
  1. COPEGUS [Suspect]
     Route: 048
     Dates: end: 20110308
  2. HAVLANE [Suspect]
     Route: 048
     Dates: start: 20110305, end: 20110305
  3. PEGASYS [Suspect]
     Route: 058
     Dates: end: 20110308
  4. PROPRANOLOL [Concomitant]
  5. ASPIRIN [Concomitant]
  6. COTRIATEC [Concomitant]
  7. HUMALOG [Concomitant]
  8. LANTUS [Concomitant]
  9. LEVOTHYROXINE SODIUM [Concomitant]
  10. ACETAMINOPHEN [Concomitant]
  11. EBASTINE [Suspect]
     Route: 048
     Dates: start: 20110305, end: 20110305

REACTIONS (2)
  - HEPATIC ENCEPHALOPATHY [None]
  - RASH [None]
